FAERS Safety Report 8740340 (Version 2)
Quarter: 2013Q4

REPORT INFORMATION
  Report Type: Spontaneous
  Country: US (occurrence: US)
  Receive Date: 20120823
  Receipt Date: 20131213
  Transmission Date: 20140711
  Serious: Yes (Hospitalization, Other)
  Sender: FDA-Public Use
  Company Number: US-009507513-2009-194846-NL

PATIENT
  Sex: Female
  Weight: 90.72 kg

DRUGS (2)
  1. NUVARING [Suspect]
     Indication: CONTRACEPTION
     Dosage: DOSE TEXT: 3 WEEKS IN; 1 WEEK OUT, CONTINUING: NO
     Route: 067
     Dates: start: 2002, end: 20071004
  2. IBUPROFEN [Concomitant]
     Indication: PRODUCT USED FOR UNKNOWN INDICATION
     Dosage: UNK UNK, PRN

REACTIONS (24)
  - Pulmonary embolism [Unknown]
  - Deep vein thrombosis [Recovered/Resolved]
  - Ankle fracture [Unknown]
  - Medication error [Unknown]
  - Device expulsion [Recovered/Resolved]
  - Uterine spasm [Unknown]
  - Vaginitis bacterial [Recovered/Resolved]
  - Pain in extremity [Unknown]
  - Abdominal pain [Unknown]
  - Migraine [Unknown]
  - Headache [Unknown]
  - Sleep disorder [Unknown]
  - Treatment noncompliance [Unknown]
  - Mental disorder [Unknown]
  - Nausea [Unknown]
  - Psychiatric symptom [Unknown]
  - Depressed mood [Unknown]
  - Frustration [Unknown]
  - Abnormal behaviour [Unknown]
  - Attention deficit/hyperactivity disorder [Unknown]
  - Transient ischaemic attack [Unknown]
  - Abdominal pain [Unknown]
  - Dyspnoea [Unknown]
  - Tachycardia [Unknown]
